FAERS Safety Report 5517510-6 (Version None)
Quarter: 2007Q4

REPORT INFORMATION
  Report Type: 
  Country: None (occurrence: None)
  Receive Date: 20071114
  Receipt Date: 20071031
  Transmission Date: 20080405
  Serious: Yes (Other)
  Sender: FDA-Public Use
  Company Number: US-RANBAXY-2007US-11367

PATIENT

DRUGS (2)
  1. ISOTRETINOIN [Suspect]
     Indication: ACNE
     Dosage: 40 MG, QD
     Route: 048
     Dates: start: 20070401
  2. STEROID (PREDNISONE) [Concomitant]
     Dosage: UNK
     Dates: start: 20070401

REACTIONS (5)
  - HEADACHE [None]
  - HYPOAESTHESIA ORAL [None]
  - MUSCLE TWITCHING [None]
  - PARALYSIS [None]
  - SOMNOLENCE [None]
